FAERS Safety Report 10589482 (Version 1)
Quarter: 2014Q4

REPORT INFORMATION
  Report Type: Spontaneous
  Country: FR (occurrence: None)
  Receive Date: 20141114
  Receipt Date: 20141114
  Transmission Date: 20150529
  Serious: Yes (Congenital Anomaly, Other)
  Sender: FDA-Public Use
  Company Number: A1023474A

PATIENT
  Age: 0 Day
  Sex: Male
  Weight: 3.5 kg

DRUGS (5)
  1. PREZISTA [Suspect]
     Active Substance: DARUNAVIR ETHANOLATE
     Indication: ANTIVIRAL TREATMENT
     Route: 064
     Dates: start: 20111018
  2. NORVIR [Suspect]
     Active Substance: RITONAVIR
     Indication: ANTIVIRAL TREATMENT
     Route: 064
     Dates: start: 20111018
  3. TRUVADA [Suspect]
     Active Substance: EMTRICITABINE\TENOFOVIR DISOPROXIL FUMARATE
     Indication: ANTIVIRAL TREATMENT
     Route: 064
     Dates: start: 20111018
  4. ISENTRESS [Suspect]
     Active Substance: RALTEGRAVIR POTASSIUM
     Indication: ANTIVIRAL TREATMENT
     Route: 064
     Dates: start: 20111018
  5. RETROVIR [Suspect]
     Active Substance: ZIDOVUDINE
     Indication: ANTIVIRAL TREATMENT
     Route: 064
     Dates: start: 20111026, end: 20111026

REACTIONS (2)
  - Maternal drugs affecting foetus [None]
  - Congenital mitral valve incompetence [None]

NARRATIVE: CASE EVENT DATE: 20111026
